FAERS Safety Report 13198614 (Version 1)
Quarter: 2017Q1

REPORT INFORMATION
  Report Type: Spontaneous
  Country: TH (occurrence: TH)
  Receive Date: 20170208
  Receipt Date: 20170208
  Transmission Date: 20170428
  Serious: Yes (Other)
  Sender: FDA-Public Use
  Company Number: TH-UNICHEM LABORATORIES LIMITED-UCM201702-000037

PATIENT
  Age: 59 Year
  Sex: Female

DRUGS (3)
  1. DONEPEZIL. [Suspect]
     Active Substance: DONEPEZIL
  2. DONEPEZIL. [Suspect]
     Active Substance: DONEPEZIL
  3. DONEPEZIL. [Suspect]
     Active Substance: DONEPEZIL

REACTIONS (1)
  - Parkinsonism [Recovering/Resolving]
